FAERS Safety Report 12903101 (Version 5)
Quarter: 2024Q2

REPORT INFORMATION
  Report Type: Report from Study
  Country: US (occurrence: US)
  Receive Date: 20161102
  Receipt Date: 20240604
  Transmission Date: 20240715
  Serious: Yes (Hospitalization, Other)
  Sender: FDA-Public Use
  Company Number: US-AEGERION PHARMACEUTICALS INC-AEGR002773

PATIENT
  Age: 59 Year
  Sex: Male

DRUGS (29)
  1. JUXTAPID [Suspect]
     Active Substance: LOMITAPIDE MESYLATE
     Indication: Type IIa hyperlipidaemia
     Dosage: 5 MG, QD
     Route: 048
     Dates: start: 20140416, end: 20160728
  2. ASPIRIN [Concomitant]
     Active Substance: ASPIRIN
     Indication: Cardiovascular event prophylaxis
     Dosage: 81 MG, QD
     Route: 048
     Dates: start: 20041109
  3. ROSUVASTATIN [Concomitant]
     Active Substance: ROSUVASTATIN
     Indication: Hyperlipidaemia
     Dosage: 40 MG, QD
     Route: 048
     Dates: start: 20090217
  4. ENALAPRIL [Concomitant]
     Active Substance: ENALAPRIL
     Indication: Cardiovascular event prophylaxis
     Dosage: 10 MG, QD
     Route: 048
     Dates: start: 20080624, end: 20151130
  5. Sacubitril / Valsartan [Concomitant]
     Indication: Cardiovascular event prophylaxis
     Dosage: 2 TABLETS, BID
     Route: 048
     Dates: start: 20151130
  6. EPLERENONE [Concomitant]
     Active Substance: EPLERENONE
     Indication: Cardiovascular event prophylaxis
     Dosage: 25 MG, QD
     Route: 048
     Dates: start: 20160314
  7. FUROSEMIDE [Concomitant]
     Active Substance: FUROSEMIDE
     Indication: Hypertension
     Dosage: 40 MG, QD
     Route: 048
     Dates: start: 20101105, end: 20160801
  8. FUROSEMIDE [Concomitant]
     Active Substance: FUROSEMIDE
     Indication: Cardiovascular event prophylaxis
     Dosage: 60 MG, QD
     Route: 048
     Dates: start: 20160305
  9. NORCO [Concomitant]
     Active Substance: ACETAMINOPHEN\HYDROCODONE BITARTRATE
     Indication: Back pain
     Dosage: 1 TABLET, EVERY 4-6 HRS AS NEEDED
     Route: 048
     Dates: start: 20101229
  10. NORCO [Concomitant]
     Active Substance: ACETAMINOPHEN\HYDROCODONE BITARTRATE
     Dosage: 1 OR 2 TABLETS, Q 4-6 HRS AS NEEDED
     Route: 048
  11. NORCO [Concomitant]
     Active Substance: ACETAMINOPHEN\HYDROCODONE BITARTRATE
     Dosage: 5-325 MG, PRN
     Route: 048
  12. VITAMINS [Concomitant]
     Active Substance: VITAMINS
     Indication: Supplementation therapy
     Dosage: 1 TABLET, QD
     Route: 048
     Dates: start: 2006
  13. NITROGLYCERIN [Concomitant]
     Active Substance: NITROGLYCERIN
     Indication: Cardiovascular event prophylaxis
     Dosage: 0.2 MG/HR, PRN
     Route: 061
     Dates: start: 2006
  14. NITROGLYCERIN [Concomitant]
     Active Substance: NITROGLYCERIN
     Indication: Chest pain
     Dosage: 1 SPRAY, EVERY 5 MINUTES IF NEEDED FOR MAXIMUM OF 3 DOSES IN 15 MINUTES
  15. OMEGA-3 ACIDS [Concomitant]
     Active Substance: OMEGA-3 FATTY ACIDS
     Indication: Supplementation therapy
     Dosage: 2 CAPSULE, QD
     Route: 048
     Dates: start: 2006
  16. CLOPIDOGREL [Concomitant]
     Active Substance: CLOPIDOGREL BISULFATE
     Indication: Cardiovascular event prophylaxis
     Dosage: 75 MG, QD
     Route: 048
     Dates: start: 20080122
  17. SOTALOL [Concomitant]
     Active Substance: SOTALOL
     Indication: Cardiovascular event prophylaxis
     Dosage: 120 MG, BID
     Route: 048
     Dates: start: 20101105
  18. LEVOTHYROXINE SODIUM [Concomitant]
     Active Substance: LEVOTHYROXINE SODIUM
     Indication: Hypothyroidism
     Dosage: 50 MCG, QD
     Route: 048
     Dates: start: 20130111
  19. LEVOTHYROXINE SODIUM [Concomitant]
     Active Substance: LEVOTHYROXINE SODIUM
     Dosage: 50 MCG, QD, IN THE MORNING SUNDAY, MONDAY, TUESDAY AND SATURDAY
     Route: 048
  20. LEVOTHYROXINE SODIUM [Concomitant]
     Active Substance: LEVOTHYROXINE SODIUM
     Dosage: 25 MCG, DAILY IN THE MORNING, FRIDAY
     Route: 048
  21. METOPROLOL SUCCINATE [Concomitant]
     Active Substance: METOPROLOL SUCCINATE
     Indication: Cardiovascular event prophylaxis
     Dosage: 150 MG, BID
     Route: 048
     Dates: start: 19970504
  22. VITAMIN E [Concomitant]
     Active Substance: .ALPHA.-TOCOPHEROL
     Indication: Supplementation therapy
     Dosage: 400 UNITS, QD
     Route: 048
     Dates: start: 20000915
  23. XANAX [Concomitant]
     Active Substance: ALPRAZOLAM
     Indication: Insomnia
     Dosage: 0.5 MG, QD
     Route: 048
     Dates: start: 20080509
  24. XANAX [Concomitant]
     Active Substance: ALPRAZOLAM
     Dosage: 1 MG, QD AT BEDTIME AS NEEDED
     Route: 048
  25. VITAMIN B COMPLEX [Concomitant]
     Active Substance: CYANOCOBALAMIN\DEXPANTHENOL\NIACINAMIDE\PYRIDOXINE HYDROCHLORIDE\RIBOFLAVIN 5^-PHOSPHATE SODIUM\THIA
     Indication: Product used for unknown indication
     Dosage: 1 TABLET, QD
     Route: 048
  26. EPIPEN [Concomitant]
     Active Substance: EPINEPHRINE
     Indication: Product used for unknown indication
     Dosage: 0.3 MG/0.3 ML, 1 SYRINGE, AS DIRECTED PRN
     Route: 030
     Dates: start: 20140722
  27. METOPROLOL SUCCINATE [Concomitant]
     Active Substance: METOPROLOL SUCCINATE
     Indication: Product used for unknown indication
     Dosage: 1 TABLET, QD, AT BEDTIME
     Route: 048
  28. OMEGA-3 FATTY ACIDS [Concomitant]
     Active Substance: OMEGA-3 FATTY ACIDS
     Indication: Product used for unknown indication
     Dosage: 2 CAPSULES, QD
     Route: 048
  29. PANTOPRAZOLE [Concomitant]
     Active Substance: PANTOPRAZOLE
     Indication: Gastrooesophageal reflux disease
     Dosage: 40 MG, QD
     Route: 048
     Dates: start: 2016

REACTIONS (6)
  - Acute left ventricular failure [Recovered/Resolved]
  - Cardiac failure acute [Recovered/Resolved]
  - Cardiac failure congestive [Recovered/Resolved]
  - Hepatomegaly [Not Recovered/Not Resolved]
  - Nephrolithiasis [Recovered/Resolved]
  - Hypokalaemia [Recovered/Resolved]

NARRATIVE: CASE EVENT DATE: 20160726
